FAERS Safety Report 14655268 (Version 1)
Quarter: 2018Q1

REPORT INFORMATION
  Report Type: Spontaneous
  Country: US (occurrence: US)
  Receive Date: 20180319
  Receipt Date: 20180319
  Transmission Date: 20180509
  Serious: Yes (Hospitalization, Other)
  Sender: FDA-Public Use
  Company Number: US-OTSUKA-2018_005779

PATIENT
  Sex: Female

DRUGS (3)
  1. ABILIFY [Suspect]
     Active Substance: ARIPIPRAZOLE
     Indication: DEPRESSION
     Dosage: UNK
     Route: 065
     Dates: start: 2017
  2. INGREZZA [Suspect]
     Active Substance: VALBENAZINE
     Indication: TARDIVE DYSKINESIA
     Dosage: UNK
     Route: 065
  3. TETRABENAZINE. [Suspect]
     Active Substance: TETRABENAZINE
     Indication: TARDIVE DYSKINESIA
     Dosage: UNK
     Route: 065

REACTIONS (12)
  - Dystonia [Unknown]
  - Fall [Unknown]
  - Parkinsonism [Unknown]
  - Apparent death [Unknown]
  - Pain in jaw [Not Recovered/Not Resolved]
  - Dyskinesia [Not Recovered/Not Resolved]
  - Memory impairment [Unknown]
  - Emotional poverty [Unknown]
  - Hallucination [Unknown]
  - Gait disturbance [Unknown]
  - Tardive dyskinesia [Not Recovered/Not Resolved]
  - Feeding disorder [Recovering/Resolving]
